FAERS Safety Report 8823976 (Version 1)
Quarter: 2012Q4

REPORT INFORMATION
  Report Type: 
  Country: US (occurrence: US)
  Receive Date: 20121003
  Receipt Date: 20121003
  Transmission Date: 20130627
  Serious: No
  Sender: FDA-Public Use
  Company Number: US-009507513-1210USA000820

PATIENT
  Age: 28 Year
  Sex: Female
  Weight: 52.15 kg

DRUGS (1)
  1. NUVARING [Suspect]
     Indication: CONTRACEPTION
     Dosage: UNK
     Route: 067
     Dates: start: 201203

REACTIONS (4)
  - Vulvovaginal mycotic infection [Unknown]
  - Vaginitis bacterial [Unknown]
  - Abdominal pain [Unknown]
  - Nausea [Unknown]
